FAERS Safety Report 8264511-3 (Version None)
Quarter: 2012Q2

REPORT INFORMATION
  Report Type: 
  Country: None (occurrence: None)
  Receive Date: 20120406
  Receipt Date: 20120327
  Transmission Date: 20120825
  Serious: Yes (Other)
  Sender: FDA-Public Use
  Company Number: CA-JNJFOC-20120400593

PATIENT
  Sex: Female

DRUGS (7)
  1. REMICADE [Suspect]
     Indication: COLITIS ULCERATIVE
     Dosage: 5 MG/KG, LAST LOADING DOSE ON 06-FEB-2012
     Route: 042
     Dates: start: 20120206
  2. PENTASA [Concomitant]
     Indication: COLITIS ULCERATIVE
     Dosage: 5 ASA
     Route: 065
     Dates: start: 20111201
  3. REMICADE [Suspect]
     Dosage: HIGH DOSE OF PREDNISONE
     Route: 042
     Dates: start: 20111201
  4. PREDNISONE TAB [Concomitant]
     Route: 065
     Dates: start: 20111201
  5. IMURAN [Concomitant]
     Route: 065
  6. PREDNISONE TAB [Concomitant]
     Indication: COLITIS ULCERATIVE
     Route: 065
  7. IMURAN [Concomitant]
     Indication: COLITIS ULCERATIVE
     Route: 065
     Dates: start: 20111201

REACTIONS (2)
  - DRUG EFFECT DECREASED [None]
  - IRON DEFICIENCY [None]
